FAERS Safety Report 24693602 (Version 1)
Quarter: 2024Q4

REPORT INFORMATION
  Report Type: Spontaneous
  Country: FR (occurrence: FR)
  Receive Date: 20241204
  Receipt Date: 20241204
  Transmission Date: 20250115
  Serious: Yes (Life-Threatening, Hospitalization, Other)
  Sender: SANDOZ
  Company Number: FR-002147023-PHHY2019FR108592

PATIENT
  Age: 39 Year
  Sex: Female

DRUGS (7)
  1. ALPRAZOLAM [Suspect]
     Active Substance: ALPRAZOLAM
     Indication: Toxicity to various agents
     Dosage: 20 MG ONCE
     Route: 048
  2. DIAZEPAM [Suspect]
     Active Substance: DIAZEPAM
     Indication: Toxicity to various agents
     Dosage: 100 MG ONCE
     Route: 048
  3. PROPRANOLOL HYDROCHLORIDE [Suspect]
     Active Substance: PROPRANOLOL HYDROCHLORIDE
     Indication: Toxicity to various agents
     Dosage: 400 MG ONCE
     Route: 048
  4. QUETIAPINE [Interacting]
     Active Substance: QUETIAPINE
     Indication: Major depression
     Dosage: 4 G ONCE
     Route: 048
  5. QUETIAPINE [Interacting]
     Active Substance: QUETIAPINE
     Indication: Toxicity to various agents
  6. VALPROATE SODIUM [Interacting]
     Active Substance: VALPROATE SODIUM
     Dosage: 18.5 G, UNK
     Route: 065
  7. VALPROATE SODIUM [Interacting]
     Active Substance: VALPROATE SODIUM
     Indication: Toxicity to various agents
     Dosage: 19 G ONCE
     Route: 048

REACTIONS (11)
  - Blood creatine phosphokinase increased [Unknown]
  - Heart rate decreased [Unknown]
  - Sinus rhythm [Unknown]
  - Blood pressure systolic decreased [Unknown]
  - Coma [Recovering/Resolving]
  - Lung disorder [Unknown]
  - Intentional overdose [Unknown]
  - Toxicity to various agents [Unknown]
  - Drug interaction [Unknown]
  - Off label use [Unknown]
  - Product use issue [Unknown]
